FAERS Safety Report 13874063 (Version 4)
Quarter: 2018Q1

REPORT INFORMATION
  Report Type: Spontaneous
  Country: US (occurrence: US)
  Receive Date: 20170816
  Receipt Date: 20180305
  Transmission Date: 20180508
  Serious: No
  Sender: FDA-Public Use
  Company Number: US-BAYER-2017-156698

PATIENT
  Age: 86 Year
  Sex: Female

DRUGS (2)
  1. MIRENA [Suspect]
     Active Substance: LEVONORGESTREL
     Indication: ENDOMETRIAL ADENOCARCINOMA
  2. MIRENA [Suspect]
     Active Substance: LEVONORGESTREL
     Indication: ENDOMETRIAL ADENOCARCINOMA
     Dosage: 20 MCG/24HR, CONT
     Route: 015
     Dates: start: 20170809, end: 20170813

REACTIONS (3)
  - Off label use of device [None]
  - Device expulsion [None]
  - Device use issue [None]

NARRATIVE: CASE EVENT DATE: 20170809
